FAERS Safety Report 21670237 (Version 5)
Quarter: 2025Q2

REPORT INFORMATION
  Report Type: Spontaneous
  Country: US (occurrence: US)
  Receive Date: 20221201
  Receipt Date: 20250423
  Transmission Date: 20250717
  Serious: Yes (Hospitalization, Other)
  Sender: PFIZER
  Company Number: US-PFIZER INC-PV202200115258

PATIENT
  Age: 75 Year
  Sex: Female

DRUGS (1)
  1. XELJANZ XR [Suspect]
     Active Substance: TOFACITINIB CITRATE

REACTIONS (5)
  - Arthritis [Unknown]
  - Gallbladder operation [Unknown]
  - Coeliac disease [Unknown]
  - Shoulder operation [Unknown]
  - Gluten sensitivity [Unknown]

NARRATIVE: CASE EVENT DATE: 20220101
